FAERS Safety Report 20533519 (Version 1)
Quarter: 2022Q1

REPORT INFORMATION
  Report Type: Spontaneous
  Country: CA (occurrence: CA)
  Receive Date: 20220301
  Receipt Date: 20220301
  Transmission Date: 20220423
  Serious: Yes (Hospitalization, Other)
  Sender: FDA-Public Use
  Company Number: CA-HLS-202200390

PATIENT
  Age: 46 Year
  Sex: Male

DRUGS (9)
  1. CLOZAPINE [Suspect]
     Active Substance: CLOZAPINE
     Indication: Psychotic disorder
     Route: 065
  2. ZOPICLONE [Suspect]
     Active Substance: ZOPICLONE
     Indication: Aggression
     Route: 065
  3. ZOPICLONE [Suspect]
     Active Substance: ZOPICLONE
     Indication: Hypersexuality
     Route: 065
  4. ZOPICLONE [Suspect]
     Active Substance: ZOPICLONE
     Indication: Aggression
     Dosage: 2 EVERY 1 DAYS
     Route: 065
  5. ZOPICLONE [Suspect]
     Active Substance: ZOPICLONE
     Indication: Hypersexuality
     Dosage: 2 EVERY 1 DAYS
     Route: 065
  6. DIVALPROEX SODIUM [Concomitant]
     Active Substance: DIVALPROEX SODIUM
     Indication: Schizoaffective disorder bipolar type
     Route: 048
  7. QUETIAPINE [Concomitant]
     Active Substance: QUETIAPINE
     Indication: Schizoaffective disorder bipolar type
     Route: 048
  8. LOXAPINE [Concomitant]
     Active Substance: LOXAPINE
     Indication: Schizoaffective disorder bipolar type
     Route: 048
  9. LITHIUM CARBONATE [Concomitant]
     Active Substance: LITHIUM CARBONATE
     Indication: Schizoaffective disorder bipolar type
     Route: 048

REACTIONS (5)
  - Cardiomyopathy [Recovered/Resolved]
  - Drug ineffective for unapproved indication [Recovered/Resolved]
  - Fatigue [Recovered/Resolved]
  - Myocarditis [Recovered/Resolved]
  - Off label use [Recovered/Resolved]
